FAERS Safety Report 8952114 (Version 2)
Quarter: 2013Q1

REPORT INFORMATION
  Report Type: Spontaneous
  Country: US (occurrence: US)
  Receive Date: 20121204
  Receipt Date: 20130102
  Transmission Date: 20140127
  Serious: No
  Sender: FDA-Public Use
  Company Number: US-AMGEN-USASP2012071395

PATIENT
  Age: 59 Year
  Sex: Female
  Weight: 81.18 kg

DRUGS (1)
  1. ENBREL [Suspect]
     Indication: RHEUMATOID ARTHRITIS
     Dosage: 50 MG, QWK
     Dates: start: 20120919, end: 201211

REACTIONS (6)
  - Local swelling [Recovered/Resolved]
  - Feeling hot [Not Recovered/Not Resolved]
  - Underdose [Not Recovered/Not Resolved]
  - Injury associated with device [Recovered/Resolved]
  - Injection site erythema [Not Recovered/Not Resolved]
  - Injection site swelling [Not Recovered/Not Resolved]
